FAERS Safety Report 14699749 (Version 1)
Quarter: 2018Q1

REPORT INFORMATION
  Report Type: Spontaneous
  Country: DE (occurrence: DE)
  Receive Date: 20180330
  Receipt Date: 20180330
  Transmission Date: 20180509
  Serious: Yes (Hospitalization, Other)
  Sender: FDA-Public Use
  Company Number: DE-PFIZER INC-2018131227

PATIENT
  Age: 64 Year
  Sex: Female

DRUGS (8)
  1. THYRONAJOD [Concomitant]
     Active Substance: LEVOTHYROXINE SODIUM\POTASSIUM IODIDE
     Dosage: 200 UG, 1X/DAY
     Dates: start: 20170209, end: 20170211
  2. METAMIZOLE [Concomitant]
     Active Substance: METAMIZOLE
     Dosage: 1000 MG, 1X/DAY
     Dates: start: 20170209, end: 20170211
  3. VENLAFAXIN [Concomitant]
     Active Substance: VENLAFAXINE HYDROCHLORIDE
     Dosage: 37.5 MG, 1X/DAY
     Dates: start: 20170210, end: 20170211
  4. IBUPROFEN. [Suspect]
     Active Substance: IBUPROFEN
     Dosage: 1200 MG, 1X/DAY
     Dates: start: 20170209, end: 20170211
  5. VALSARTAN. [Interacting]
     Active Substance: VALSARTAN
     Dosage: 80 MG, 1X/DAY
     Dates: start: 20170210, end: 20170211
  6. CANDESARTAN HEUMANN [Interacting]
     Active Substance: CANDESARTAN CILEXETIL
     Dosage: 8 MG, 1X/DAY  (AMBULANT)
     Dates: end: 20170209
  7. LITHIUM APOGEPHA [Interacting]
     Active Substance: LITHIUM CARBONATE
     Dosage: 900 MG, 1X/DAY
     Dates: start: 20170209, end: 20170211
  8. PANTOPRAZOL ABZ [Concomitant]
     Active Substance: PANTOPRAZOLE SODIUM
     Dosage: 40 MG, 1X/DAY
     Dates: start: 20170209, end: 20170211

REACTIONS (4)
  - Altered state of consciousness [Recovered/Resolved]
  - Toxicity to various agents [Recovered/Resolved]
  - Drug interaction [Recovered/Resolved]
  - Somnolence [Recovered/Resolved]

NARRATIVE: CASE EVENT DATE: 20170211
